FAERS Safety Report 7947307-9 (Version None)
Quarter: 2011Q4

REPORT INFORMATION
  Report Type: 
  Country: None (occurrence: None)
  Receive Date: 20111130
  Receipt Date: 20111123
  Transmission Date: 20120403
  Serious: Yes (Hospitalization, Other)
  Sender: FDA-Public Use
  Company Number: GB-BIOGENIDEC-2011BI037495

PATIENT
  Sex: Female

DRUGS (4)
  1. ASTAXANTHIN [Concomitant]
     Route: 048
  2. BACLOFEN [Concomitant]
  3. TYSABRI [Suspect]
     Indication: RELAPSING-REMITTING MULTIPLE SCLEROSIS
     Route: 042
  4. OXYBUTININ [Concomitant]

REACTIONS (1)
  - RENAL FAILURE [None]
